FAERS Safety Report 22147856 (Version 1)
Quarter: 2023Q1

REPORT INFORMATION
  Report Type: Spontaneous
  Country: FR (occurrence: FR)
  Receive Date: 20230328
  Receipt Date: 20230328
  Transmission Date: 20230418
  Serious: Yes (Hospitalization, Other)
  Sender: FDA-Public Use
  Company Number: FR-SA-2016SA045647

PATIENT
  Sex: Female

DRUGS (10)
  1. LAMOTRIGINE [Suspect]
     Active Substance: LAMOTRIGINE
     Indication: Epilepsy
     Dosage: UNK
     Route: 048
  2. CLONAZEPAM [Suspect]
     Active Substance: CLONAZEPAM
     Indication: Epilepsy
     Dosage: UNK
     Route: 048
  3. VALPROATE SODIUM [Suspect]
     Active Substance: VALPROATE SODIUM
     Indication: Epilepsy
     Dosage: 3 DOSAGE FORM, QD
     Route: 048
     Dates: start: 198710, end: 1991
  4. VALPROATE SODIUM [Suspect]
     Active Substance: VALPROATE SODIUM
     Dosage: 3 DOSAGE FORM, QD
     Route: 048
     Dates: start: 1991, end: 1997
  5. VALPROATE SODIUM [Suspect]
     Active Substance: VALPROATE SODIUM
     Dosage: 1 DOSAGE FORM, QD
     Route: 048
     Dates: start: 199801
  6. PHENOBARBITAL [Concomitant]
     Active Substance: PHENOBARBITAL
     Indication: Epilepsy
     Dosage: UNK
     Route: 065
     Dates: start: 199707
  7. BROMAZEPAM [Concomitant]
     Active Substance: BROMAZEPAM
     Dosage: UNK
     Route: 065
  8. SABRIL [Concomitant]
     Active Substance: VIGABATRIN
     Indication: Epilepsy
     Dosage: 1000 MILLIGRAM, QD
     Route: 065
     Dates: start: 199409
  9. SABRIL [Concomitant]
     Active Substance: VIGABATRIN
     Dosage: 2000 MILLIGRAM, QD
     Route: 065
  10. GABITRIL [Concomitant]
     Active Substance: TIAGABINE HYDROCHLORIDE
     Indication: Epilepsy
     Dosage: UNK
     Route: 065
     Dates: start: 199801

REACTIONS (7)
  - Epilepsy [Recovering/Resolving]
  - Cortical dysplasia [Unknown]
  - Abortion spontaneous [Recovered/Resolved]
  - Drug ineffective [Recovering/Resolving]
  - Anticonvulsant drug level increased [Unknown]
  - Menstrual disorder [Unknown]
  - Exposure during pregnancy [Recovered/Resolved]

NARRATIVE: CASE EVENT DATE: 19940901
